FAERS Safety Report 18935213 (Version 1)
Quarter: 2021Q1

REPORT INFORMATION
  Report Type: Spontaneous
  Country: US (occurrence: US)
  Receive Date: 20210224
  Receipt Date: 20210224
  Transmission Date: 20210420
  Serious: No
  Sender: FDA-Public Use
  Company Number: US-TERSERA THERAPEUTICS LLC-2019TRS000024

PATIENT

DRUGS (15)
  1. MORPHINE [Suspect]
     Active Substance: MORPHINE
     Indication: PAIN
     Dosage: 0.3104 MG, QD
     Route: 037
     Dates: end: 20180807
  2. MORPHINE [Suspect]
     Active Substance: MORPHINE
     Dosage: 0.4603 MG, QD
     Route: 037
     Dates: start: 20180814
  3. BUPIVACAIN [Suspect]
     Active Substance: BUPIVACAINE
     Dosage: 4.447 MG, QD
     Route: 037
  4. OXYCODONE [Suspect]
     Active Substance: OXYCODONE
     Indication: PAIN
     Dosage: UNK
     Route: 065
  5. DILAUDID [Suspect]
     Active Substance: HYDROMORPHONE HYDROCHLORIDE
     Indication: PRODUCT USED FOR UNKNOWN INDICATION
     Dosage: UNK
     Route: 037
  6. PRIALT [Suspect]
     Active Substance: ZICONOTIDE ACETATE
     Dosage: 0.5 MICROGRAM, QD
     Route: 037
  7. MORPHINE [Suspect]
     Active Substance: MORPHINE
     Dosage: 0.769 MG, QD
     Route: 037
  8. PRIALT [Suspect]
     Active Substance: ZICONOTIDE ACETATE
     Indication: PAIN
     Dosage: UNK
     Route: 037
  9. PRIALT [Suspect]
     Active Substance: ZICONOTIDE ACETATE
     Dosage: 0.578 MICROGRAM, QD
     Route: 037
  10. MORPHINE [Suspect]
     Active Substance: MORPHINE
     Dosage: 0.889 MG, QD
     Route: 037
  11. DILAUDID [Suspect]
     Active Substance: HYDROMORPHONE HYDROCHLORIDE
     Dosage: UNK, (INCREASED DOSE)
     Route: 037
  12. MORPHINE [Suspect]
     Active Substance: MORPHINE
     Dosage: 0.4296 MG, QD
     Route: 037
     Dates: start: 20180807
  13. MORPHINE [Suspect]
     Active Substance: MORPHINE
     Dosage: 0.3412 MG, QD
     Route: 037
     Dates: end: 20180814
  14. BUPIVACAIN [Suspect]
     Active Substance: BUPIVACAINE
     Indication: PRODUCT USED FOR UNKNOWN INDICATION
     Dosage: UNK
     Route: 037
  15. BUPIVACAIN [Suspect]
     Active Substance: BUPIVACAINE
     Dosage: 3.846 MG, QD
     Route: 037

REACTIONS (4)
  - Pain [Recovered/Resolved]
  - Off label use [Unknown]
  - Therapeutic product effect decreased [Recovered/Resolved]
  - Headache [Not Recovered/Not Resolved]

NARRATIVE: CASE EVENT DATE: 20180814
